FAERS Safety Report 17143977 (Version 1)
Quarter: 2019Q4

REPORT INFORMATION
  Report Type: Report from Study
  Country: CO (occurrence: CO)
  Receive Date: 20191212
  Receipt Date: 20191212
  Transmission Date: 20200122
  Serious: Yes (Hospitalization)
  Sender: FDA-Public Use
  Company Number: CO-ASTELLAS-2019US028922

PATIENT
  Age: 48 Year
  Sex: Female
  Weight: 118 kg

DRUGS (12)
  1. ATORVASTATIN [Concomitant]
     Active Substance: ATORVASTATIN
     Route: 048
     Dates: start: 20190711
  2. PREDNISOLONE. [Concomitant]
     Active Substance: PREDNISOLONE
     Route: 048
  3. METOPROLOL. [Concomitant]
     Active Substance: METOPROLOL
     Indication: BLOOD PRESSURE INCREASED
     Route: 048
  4. TACROLIMUS. [Suspect]
     Active Substance: TACROLIMUS
     Indication: RENAL TRANSPLANT
     Dosage: 7 MG (1 CAPSULE OF 5MG AND 2 CAPSULES OF 1MG) ONCE DAILY
     Route: 048
     Dates: start: 20140214
  5. PREDNISOLONE. [Concomitant]
     Active Substance: PREDNISOLONE
     Indication: IMMUNOSUPPRESSANT DRUG THERAPY
     Route: 048
     Dates: end: 201908
  6. CALCITRIOL. [Concomitant]
     Active Substance: CALCITRIOL
     Dosage: 0.25G, ONCE DAILY
     Route: 048
     Dates: start: 201907
  7. TACROLIMUS. [Suspect]
     Active Substance: TACROLIMUS
     Dosage: 8 MG, ONCE DAILY (1 CAPSULE OF 5MG AND 3 CAPSULES OF 1MG )
     Route: 048
     Dates: start: 20190711
  8. PREDNISOLONE. [Concomitant]
     Active Substance: PREDNISOLONE
     Indication: RENAL TRANSPLANT
     Route: 048
     Dates: start: 20140214
  9. CALCITRIOL. [Concomitant]
     Active Substance: CALCITRIOL
     Dosage: 0.5 MG, ONCE DAILY
     Route: 048
  10. MYCOPHENOLATE [Concomitant]
     Active Substance: MYCOPHENOLIC ACID
     Indication: RENAL TRANSPLANT
     Dosage: 3 DF (2 TABLETS IN MORNING AND 1 TABLET IN THE NIGHT)
     Route: 048
     Dates: start: 20140214
  11. CALCITRIOL. [Concomitant]
     Active Substance: CALCITRIOL
     Indication: MINERAL SUPPLEMENTATION
     Dosage: 0.25 G, EVERY 8 HOURS
     Route: 048
     Dates: start: 20140214, end: 20190610
  12. ATORVASTATIN [Concomitant]
     Active Substance: ATORVASTATIN
     Indication: BLOOD CHOLESTEROL
     Route: 048
     Dates: end: 20190609

REACTIONS (6)
  - Pain in extremity [Recovered/Resolved]
  - Blood cholesterol increased [Recovering/Resolving]
  - Malaise [Recovered/Resolved]
  - Oedema peripheral [Recovered/Resolved]
  - Immunosuppressant drug level decreased [Not Recovered/Not Resolved]
  - Blood creatinine increased [Recovered/Resolved]

NARRATIVE: CASE EVENT DATE: 20190525
